FAERS Safety Report 20198726 (Version 2)
Quarter: 2022Q1

REPORT INFORMATION
  Report Type: Spontaneous
  Country: CA (occurrence: CA)
  Receive Date: 20211217
  Receipt Date: 20220111
  Transmission Date: 20220424
  Serious: Yes (Other)
  Sender: FDA-Public Use
  Company Number: CA-BAYER-2021A263625

PATIENT
  Sex: Female

DRUGS (1)
  1. LEVONORGESTREL [Suspect]
     Active Substance: LEVONORGESTREL
     Indication: Genital haemorrhage
     Dosage: 14?G/DAY
     Route: 015

REACTIONS (5)
  - Device breakage [None]
  - Complication of device removal [None]
  - Off label use of device [None]
  - Off label use of device [None]
  - Intentional product use issue [None]
